FAERS Safety Report 17906950 (Version 7)
Quarter: 2022Q2

REPORT INFORMATION
  Report Type: Spontaneous
  Country: US (occurrence: US)
  Receive Date: 20200617
  Receipt Date: 20220414
  Transmission Date: 20220721
  Serious: No
  Sender: FDA-Public Use
  Company Number: US-PFIZER INC-2020234918

PATIENT
  Age: 55 Year
  Sex: Female

DRUGS (4)
  1. XELJANZ XR [Suspect]
     Active Substance: TOFACITINIB CITRATE
     Indication: Rheumatoid arthritis
     Dosage: 11 MG, DAILY
     Route: 048
     Dates: start: 20200604
  2. XELJANZ XR [Suspect]
     Active Substance: TOFACITINIB CITRATE
     Dosage: 11 MG, DAILY
     Route: 048
     Dates: start: 20210807
  3. PLAQUENIL [Concomitant]
     Active Substance: HYDROXYCHLOROQUINE SULFATE
     Dosage: UNK
  4. SULFASALAZINE [Concomitant]
     Active Substance: SULFASALAZINE
     Dosage: UNK

REACTIONS (17)
  - Insomnia [Not Recovered/Not Resolved]
  - Headache [Not Recovered/Not Resolved]
  - Nasal discomfort [Unknown]
  - Nasal congestion [Unknown]
  - Condition aggravated [Not Recovered/Not Resolved]
  - Dermatitis acneiform [Unknown]
  - Product dose omission issue [Unknown]
  - SARS-CoV-2 test positive [Unknown]
  - Chills [Unknown]
  - Night sweats [Unknown]
  - Anosmia [Unknown]
  - Ageusia [Unknown]
  - Abdominal discomfort [Unknown]
  - Cough [Recovering/Resolving]
  - Swelling [Unknown]
  - Peripheral swelling [Unknown]
  - Respiratory symptom [Unknown]

NARRATIVE: CASE EVENT DATE: 20200601
